FAERS Safety Report 19392900 (Version 1)
Quarter: 2021Q2

REPORT INFORMATION
  Report Type: Spontaneous
  Country: PT (occurrence: PT)
  Receive Date: 20210609
  Receipt Date: 20210609
  Transmission Date: 20210717
  Serious: Yes (Other)
  Sender: FDA-Public Use
  Company Number: PT-AUROBINDO-AUR-APL-2021-023439

PATIENT
  Age: 32 Year
  Sex: Female

DRUGS (5)
  1. ARIPIPRAZOLE TABLETS [Suspect]
     Active Substance: ARIPIPRAZOLE
     Indication: SCHIZOPHRENIA
     Dosage: 10 MG HALF TABLET
     Route: 065
  2. TREVICTA [Suspect]
     Active Substance: PALIPERIDONE PALMITATE
     Dosage: 263 MILLIGRAM, 3 MONTHS
     Route: 030
     Dates: start: 201811
  3. TREVICTA [Suspect]
     Active Substance: PALIPERIDONE PALMITATE
     Indication: SCHIZOPHRENIA
     Dosage: 175 MILLIGRAM, 3 MONTHS
     Route: 030
  4. ARIPIPRAZOLE TABLETS [Suspect]
     Active Substance: ARIPIPRAZOLE
     Dosage: 5 MILLIGRAM
     Route: 065
  5. QUETIAPINE. [Concomitant]
     Active Substance: QUETIAPINE
     Indication: INSOMNIA
     Dosage: UNK
     Route: 065

REACTIONS (5)
  - Social avoidant behaviour [Unknown]
  - Amenorrhoea [Unknown]
  - Blunted affect [Unknown]
  - Delusion [Unknown]
  - Hyperprolactinaemia [Unknown]

NARRATIVE: CASE EVENT DATE: 202103
